FAERS Safety Report 21225730 (Version 1)
Quarter: 2022Q3

REPORT INFORMATION
  Report Type: Spontaneous
  Country: CA (occurrence: CA)
  Receive Date: 20220818
  Receipt Date: 20220818
  Transmission Date: 20221027
  Serious: Yes (Life-Threatening)
  Sender: FDA-Public Use
  Company Number: CA-AUROBINDO-AUR-APL-2022-032337

PATIENT
  Age: 70 Year
  Sex: Male
  Weight: 92 kg

DRUGS (2)
  1. HYDROCHLOROTHIAZIDE\IRBESARTAN [Suspect]
     Active Substance: HYDROCHLOROTHIAZIDE\IRBESARTAN
     Indication: Hypertension
     Dosage: 1 DOSAGE FORM, ONCE A DAY
     Route: 048
  2. AMLODIPINE [Concomitant]
     Active Substance: AMLODIPINE BESYLATE

REACTIONS (1)
  - Blood pressure increased [Recovered/Resolved]
